FAERS Safety Report 9696455 (Version 2)
Quarter: 2014Q1

REPORT INFORMATION
  Report Type: Spontaneous
  Country: IT (occurrence: IT)
  Receive Date: 20131119
  Receipt Date: 20140321
  Transmission Date: 20141002
  Serious: Yes (Hospitalization)
  Sender: FDA-Public Use
  Company Number: IT-PFIZER INC-2013331200

PATIENT
  Age: 46 Year
  Sex: Female

DRUGS (2)
  1. ALPRAZOLAM [Suspect]
     Dosage: 1 MG, TOTAL DOSAGE
     Route: 048
     Dates: start: 20130815, end: 20130815
  2. ESOMEPRAZOLE MAGNESIUM DIHYDRATE [Suspect]
     Dosage: 8 MG, TOTAL DOSAGE
     Route: 048
     Dates: start: 20130815, end: 20130815

REACTIONS (3)
  - Intentional self-injury [Unknown]
  - Sopor [Unknown]
  - Drug abuse [Unknown]
